FAERS Safety Report 8238987-1 (Version None)
Quarter: 2012Q1

REPORT INFORMATION
  Report Type: 
  Country: None (occurrence: None)
  Receive Date: 20120327
  Receipt Date: 20120321
  Transmission Date: 20120608
  Serious: Yes (Hospitalization)
  Sender: FDA-Public Use
  Company Number: PHHY2012IT025821

PATIENT
  Sex: Male

DRUGS (3)
  1. PRAMIPEXOLE DIHYDROCHLORIDE [Suspect]
     Dosage: UNK UKN, UNK
     Route: 048
  2. STALEVO 100 [Suspect]
     Indication: PARKINSON'S DISEASE
     Dosage: 25 MG/ 200 MG/100MG, 3 DF, DAILY
     Route: 048
     Dates: start: 20111001
  3. PRAMIPEXOLE DIHYDROCHLORIDE [Suspect]
     Indication: PARKINSON'S DISEASE
     Dosage: 1 DF, DAILY
     Route: 048
     Dates: start: 20111001, end: 20111116

REACTIONS (4)
  - BALANCE DISORDER [None]
  - POSTURE ABNORMAL [None]
  - DYSKINESIA [None]
  - HEADACHE [None]
